FAERS Safety Report 9496839 (Version 1)
Quarter: 2013Q3

REPORT INFORMATION
  Report Type: Spontaneous
  Country: FR (occurrence: FR)
  Receive Date: 20130904
  Receipt Date: 20130904
  Transmission Date: 20140515
  Serious: Yes (Death)
  Sender: FDA-Public Use
  Company Number: FR-PFIZER INC-2013251961

PATIENT
  Age: 56 Year
  Sex: Female
  Weight: 58 kg

DRUGS (2)
  1. SUTENT [Suspect]
     Indication: RENAL CANCER
     Dosage: 50 MG, 4 WEEKS ON 2 WEEKS OFF
     Dates: start: 20091125, end: 20100624
  2. SUTENT [Suspect]
     Dosage: 37.5 MG, 4 WEEKS ON 2 WEEKS OFF
     Dates: start: 20101111, end: 20110902

REACTIONS (1)
  - Death [Fatal]
